FAERS Safety Report 10257701 (Version 1)
Quarter: 2014Q2

REPORT INFORMATION
  Report Type: Spontaneous
  Country: US (occurrence: None)
  Receive Date: 20140623
  Receipt Date: 20140623
  Transmission Date: 20141212
  Serious: No
  Sender: FDA-Public Use
  Company Number: None

PATIENT
  Age: 48 Year
  Sex: Male
  Weight: 88 kg

DRUGS (1)
  1. FORTESTA [Suspect]
     Indication: HYPOGONADISM
     Dosage: 2 PUMPS ONCE DAILY APPLIED TO A SURFACE, USUALLY THE SKIN.
     Dates: start: 20140611, end: 20140616

REACTIONS (1)
  - Application site rash [None]
